FAERS Safety Report 23523487 (Version 1)
Quarter: 2024Q1

REPORT INFORMATION
  Report Type: Spontaneous
  Country: US (occurrence: None)
  Receive Date: 20240214
  Receipt Date: 20240214
  Transmission Date: 20240410
  Serious: Yes (Death)
  Sender: FDA-Public Use
  Company Number: None

PATIENT
  Age: 83 Year
  Sex: Male
  Weight: 45.81 kg

DRUGS (11)
  1. ERLEADA [Suspect]
     Active Substance: APALUTAMIDE
     Indication: Prostate cancer
     Dosage: FREQUENCY : DAILY;?
     Route: 048
     Dates: start: 20230809, end: 202402
  2. ALPRAZOLAM [Concomitant]
     Active Substance: ALPRAZOLAM
  3. ASPIRIN [Concomitant]
     Active Substance: ASPIRIN
  4. BICALUTAMIDE [Concomitant]
     Active Substance: BICALUTAMIDE
  5. CARBIDOPA\LEVODOPA [Concomitant]
     Active Substance: CARBIDOPA\LEVODOPA
  6. FINASTERIDE [Concomitant]
     Active Substance: FINASTERIDE
  7. LATANOPROST [Concomitant]
     Active Substance: LATANOPROST
  8. VITAMINS [Concomitant]
     Active Substance: VITAMINS
  9. PROPAFENONE [Concomitant]
     Active Substance: PROPAFENONE
  10. VITAMIN D [Concomitant]
     Active Substance: VITAMIN D NOS
  11. DIGOXIN [Concomitant]
     Active Substance: DIGOXIN

REACTIONS (1)
  - Death [None]

NARRATIVE: CASE EVENT DATE: 20240201
